FAERS Safety Report 6098678-2 (Version None)
Quarter: 2009Q1

REPORT INFORMATION
  Report Type: 
  Country: None (occurrence: None)
  Receive Date: 20090302
  Receipt Date: 20090220
  Transmission Date: 20090719
  Serious: Yes (Other)
  Sender: FDA-Public Use
  Company Number: CA-JNJFOC-20090100327

PATIENT
  Sex: Male
  Weight: 114 kg

DRUGS (9)
  1. REMICADE [Suspect]
     Route: 042
  2. REMICADE [Suspect]
     Indication: PSORIATIC ARTHROPATHY
     Route: 042
  3. HYDROCHLOROTHIAZIDE [Concomitant]
  4. PARLET [Concomitant]
  5. LIPITOR [Concomitant]
  6. FOLIC ACID [Concomitant]
  7. ACCUPRIL [Concomitant]
  8. INSULIN [Concomitant]
     Dosage: 120 UNITS IN THE MORNING AND 100 UNITS IN THE EVENING
  9. METFORMIN HCL [Concomitant]

REACTIONS (4)
  - AORTIC STENOSIS [None]
  - ATRIAL FLUTTER [None]
  - CARDIAC FAILURE CONGESTIVE [None]
  - RENAL FAILURE [None]
